FAERS Safety Report 9830524 (Version 2)
Quarter: 2014Q2

REPORT INFORMATION
  Report Type: Spontaneous
  Country: US (occurrence: US)
  Receive Date: 20140120
  Receipt Date: 20140403
  Transmission Date: 20141212
  Serious: No
  Sender: FDA-Public Use
  Company Number: US-009507513-1401USA008479

PATIENT
  Age: 82 Year
  Sex: Female
  Weight: 75.74 kg

DRUGS (1)
  1. OXYTROL FOR WOMEN [Suspect]
     Indication: PRODUCT USED FOR UNKNOWN INDICATION
     Dosage: 1 DF, UNKNOWN
     Route: 062
     Dates: start: 20131216, end: 20131225

REACTIONS (3)
  - Application site discolouration [Not Recovered/Not Resolved]
  - Rash erythematous [Unknown]
  - Rash pruritic [Unknown]
